FAERS Safety Report 6899182-1 (Version None)
Quarter: 2010Q3

REPORT INFORMATION
  Report Type: 
  Country: None (occurrence: None)
  Receive Date: 20100802
  Receipt Date: 20080213
  Transmission Date: 20110219
  Serious: Yes (Life-Threatening, Other)
  Sender: FDA-Public Use
  Company Number: US-PFIZER INC-2007107802

PATIENT
  Sex: Male
  Weight: 120.7 kg

DRUGS (9)
  1. LYRICA [Suspect]
     Indication: NEURALGIA
     Dates: start: 20051122, end: 20080101
  2. HYDROCHLOROTHIAZIDE [Concomitant]
  3. LISINOPRIL [Concomitant]
  4. METFORMIN HCL [Concomitant]
  5. METOPROLOL [Concomitant]
  6. SIMVASTATIN [Concomitant]
  7. ACETYLSALICYLIC ACID SRT [Concomitant]
  8. CHOLESTYRAMINE [Concomitant]
  9. LANSOPRAZOLE [Concomitant]

REACTIONS (1)
  - IDIOPATHIC PULMONARY FIBROSIS [None]
